FAERS Safety Report 6271439-7 (Version None)
Quarter: 2009Q3

REPORT INFORMATION
  Report Type: 
  Country: None (occurrence: None)
  Receive Date: 20090715
  Receipt Date: 20090715
  Transmission Date: 20100115
  Serious: Yes (Death)
  Sender: FDA-Public Use
  Company Number: None

PATIENT
  Sex: Female

DRUGS (5)
  1. REVLIMID [Suspect]
     Indication: MYELODYSPLASTIC SYNDROME
     Dosage: 15MG DAILY 21D/28D ORALLY
     Route: 048
     Dates: start: 20090101, end: 20090601
  2. PROCRIT [Concomitant]
  3. OMEPRAZOLE [Concomitant]
  4. LEVOTHROID [Concomitant]
  5. CHLORHEXIDINE GLUCONATE [Concomitant]

REACTIONS (4)
  - CARDIOPULMONARY FAILURE [None]
  - INFLUENZA [None]
  - MULTI-ORGAN FAILURE [None]
  - RENAL FAILURE ACUTE [None]
